FAERS Safety Report 7719104-0 (Version None)
Quarter: 2011Q3

REPORT INFORMATION
  Report Type: 
  Country: None (occurrence: None)
  Receive Date: 20110830
  Receipt Date: 20110826
  Transmission Date: 20111222
  Serious: Yes (Death, Life-Threatening)
  Sender: FDA-Public Use
  Company Number: CN-JNJFOC-20110807480

PATIENT
  Age: 50 Year
  Sex: Female

DRUGS (3)
  1. INVEGA [Suspect]
     Route: 048
     Dates: start: 20110801, end: 20110801
  2. CLONAZEPAM [Suspect]
     Indication: SCHIZOPHRENIA
     Dosage: UNCOUNTED TABLETS
     Route: 048
     Dates: start: 20110801, end: 20110801
  3. INVEGA [Suspect]
     Indication: SCHIZOPHRENIA
     Route: 048

REACTIONS (1)
  - MULTIPLE DRUG OVERDOSE [None]
